FAERS Safety Report 9808321 (Version 2)
Quarter: 2014Q1

REPORT INFORMATION
  Report Type: Spontaneous
  Country: US (occurrence: US)
  Receive Date: 20140110
  Receipt Date: 20140328
  Transmission Date: 20141002
  Serious: Yes (Hospitalization, Other)
  Sender: FDA-Public Use
  Company Number: US-TEVA-455139USA

PATIENT
  Age: 38 Year
  Sex: Female
  Weight: 54.93 kg

DRUGS (3)
  1. PARAGARD 380A [Suspect]
     Indication: CONTRACEPTION
     Route: 015
     Dates: start: 20130930, end: 20131220
  2. SPIRONOLACTONE [Concomitant]
     Indication: PRODUCT USED FOR UNKNOWN INDICATION
     Route: 048
  3. CLARITIN [Concomitant]
     Indication: SEASONAL ALLERGY
     Route: 048

REACTIONS (5)
  - Embedded device [Recovered/Resolved]
  - Uterine perforation [Recovered/Resolved]
  - Abdominal distension [Recovered/Resolved]
  - Menorrhagia [Recovered/Resolved]
  - Flank pain [Recovered/Resolved]
